FAERS Safety Report 13794606 (Version 1)
Quarter: 2017Q3

REPORT INFORMATION
  Report Type: Spontaneous
  Country: US (occurrence: US)
  Receive Date: 20170726
  Receipt Date: 20170726
  Transmission Date: 20171127
  Serious: No
  Sender: FDA-Public Use
  Company Number: US-PFIZER INC-2017324263

PATIENT
  Age: 69 Year
  Sex: Female
  Weight: 59 kg

DRUGS (1)
  1. KERYDIN [Suspect]
     Active Substance: TAVABOROLE
     Indication: FUNGAL INFECTION
     Dosage: APPLIED TO NAIL ON BOTH BIG TOES ONCE DAILY
     Dates: start: 20161219

REACTIONS (2)
  - Ingrowing nail [Not Recovered/Not Resolved]
  - Skin disorder [Not Recovered/Not Resolved]
